FAERS Safety Report 8470146-X (Version None)
Quarter: 2012Q2

REPORT INFORMATION
  Report Type: 
  Country: None (occurrence: None)
  Receive Date: 20120627
  Receipt Date: 20120615
  Transmission Date: 20120825
  Serious: Yes (Hospitalization, Other)
  Sender: FDA-Public Use
  Company Number: BR-BRISTOL-MYERS SQUIBB COMPANY-16695041

PATIENT
  Age: 67 Year
  Sex: Male
  Weight: 78 kg

DRUGS (10)
  1. FUROSEMIDE [Concomitant]
  2. CLOPIDOGREL BISULFATE [Concomitant]
     Dosage: AFTER LUNCH
  3. SPIRIVA [Concomitant]
     Dosage: SPIRIVA RESPIMAT
  4. ISOSORBIDE MONONITRATE [Concomitant]
     Dosage: 3 TIMES/DAY AT 8H00, 16H00 AND 24H00
  5. DIAMICRON [Concomitant]
     Dosage: DIAMICRON (GLICAZIDE ONCE/DAY AT 8H00)
  6. LIPITOR [Concomitant]
     Dosage: ONCE/DAY AT 8H00
  7. ALENIA [Concomitant]
     Dosage: ONCE/DAY AT 8H00),
  8. ACETYLSALICYLIC ACID SRT [Concomitant]
     Dosage: AFTER LUNCH
  9. ONGLYZA [Suspect]
     Indication: DIABETES MELLITUS
     Dosage: DOSE REDUCED TO 2.5MG/DAY SINCE 15-JUN-2012
     Route: 048
     Dates: start: 20110101
  10. APRESOLINE [Concomitant]
     Dosage: 3 TIMES/DAY AT 8H00, 16H00 AND 24H00

REACTIONS (6)
  - BLOOD PRESSURE FLUCTUATION [None]
  - INFLUENZA [None]
  - PLEURAL EFFUSION [None]
  - RENAL IMPAIRMENT [None]
  - INFARCTION [None]
  - BLOOD GLUCOSE FLUCTUATION [None]
